FAERS Safety Report 13435948 (Version 1)
Quarter: 2017Q2

REPORT INFORMATION
  Report Type: Spontaneous
  Country: US (occurrence: US)
  Receive Date: 20170412
  Receipt Date: 20170412
  Transmission Date: 20170830
  Serious: No
  Sender: FDA-Public Use
  Company Number: None

PATIENT
  Age: 64 Year
  Sex: Male
  Weight: 114.7 kg

DRUGS (10)
  1. VALSARTIN [Concomitant]
  2. PRADAXA [Suspect]
     Active Substance: DABIGATRAN ETEXILATE MESYLATE
     Indication: ATRIAL FIBRILLATION
     Dates: start: 20161110
  3. CARVIDELOL [Concomitant]
  4. FUROSEMIDE. [Concomitant]
     Active Substance: FUROSEMIDE
  5. FISH OIL [Concomitant]
     Active Substance: FISH OIL
  6. PRADAXA [Suspect]
     Active Substance: DABIGATRAN ETEXILATE MESYLATE
     Indication: CARDIAC PACEMAKER INSERTION
     Dates: start: 20161110
  7. GLUCOSEMINE [Concomitant]
  8. CILOSTAZOL. [Concomitant]
     Active Substance: CILOSTAZOL
  9. POTASSIUM [Concomitant]
     Active Substance: POTASSIUM
  10. MULTI VITAMIN [Concomitant]
     Active Substance: VITAMINS

REACTIONS (2)
  - Impaired work ability [None]
  - Nausea [None]

NARRATIVE: CASE EVENT DATE: 20161215
